FAERS Safety Report 11310008 (Version 2)
Quarter: 2015Q3

REPORT INFORMATION
  Report Type: Spontaneous
  Country: US (occurrence: US)
  Receive Date: 20150724
  Receipt Date: 20150910
  Transmission Date: 20151125
  Serious: No
  Sender: FDA-Public Use
  Company Number: US-AMGEN-USASP2015072693

PATIENT
  Age: 62 Year
  Sex: Female

DRUGS (1)
  1. ENBREL [Suspect]
     Active Substance: ETANERCEPT
     Indication: RHEUMATOID ARTHRITIS
     Dosage: 50 MG, QWK
     Route: 058
     Dates: start: 201507

REACTIONS (5)
  - Rash [Recovered/Resolved]
  - Pruritus [Unknown]
  - Herpes zoster [Recovered/Resolved]
  - Dermatitis contact [Recovered/Resolved]
  - Blister [Unknown]

NARRATIVE: CASE EVENT DATE: 2015
